FAERS Safety Report 19578053 (Version 20)
Quarter: 2024Q1

REPORT INFORMATION
  Report Type: Report from Study
  Country: CA (occurrence: CA)
  Receive Date: 20210719
  Receipt Date: 20240212
  Transmission Date: 20240410
  Serious: Yes (Other)
  Sender: FDA-Public Use
  Company Number: CA-BAUSCH-BL-2020-003529

PATIENT
  Sex: Female
  Weight: 111.11 kg

DRUGS (20)
  1. CONTRAVE [Suspect]
     Active Substance: BUPROPION HYDROCHLORIDE\NALTREXONE HYDROCHLORIDE
     Indication: Weight control
     Dosage: 90 MG/8 MG, (WEEK 1, 1 TABLET IN THE MORNING)
     Route: 048
     Dates: start: 20191027, end: 20191102
  2. CONTRAVE [Suspect]
     Active Substance: BUPROPION HYDROCHLORIDE\NALTREXONE HYDROCHLORIDE
     Dosage: 90 MG/8 MG, (WEEK 2, 1 TABLET IN THE MORNING AND 1 TABLET IN THE EVENING)
     Route: 048
     Dates: start: 20191103, end: 20191109
  3. CONTRAVE [Suspect]
     Active Substance: BUPROPION HYDROCHLORIDE\NALTREXONE HYDROCHLORIDE
     Dosage: 90 MG/8 MG, (WEEK 3, 2 TABLETS IN THE MORNING AND 1 TABLET IN THE EVENING)
     Route: 048
     Dates: start: 20191110, end: 20191113
  4. CONTRAVE [Suspect]
     Active Substance: BUPROPION HYDROCHLORIDE\NALTREXONE HYDROCHLORIDE
     Dosage: 90 MG/8 MG, (SECOND ATTEMPT) IN THE EVENING (1 DOSAGE FORMS, 1 IN 2 D)
     Route: 048
     Dates: start: 20200302, end: 20200312
  5. CONTRAVE [Suspect]
     Active Substance: BUPROPION HYDROCHLORIDE\NALTREXONE HYDROCHLORIDE
     Dosage: 90 MG/8 MG, (THIRD ATTEMPT) IN THE MORNING (1 DOSAGE FORMS,1 IN 1 D)
     Route: 048
     Dates: start: 20200511, end: 20200511
  6. CONTRAVE [Suspect]
     Active Substance: BUPROPION HYDROCHLORIDE\NALTREXONE HYDROCHLORIDE
     Dosage: 90 MG/8 MG, 1 TABLET IN THE MORNING
     Route: 048
     Dates: start: 20200625, end: 20221005
  7. CONTRAVE [Suspect]
     Active Substance: BUPROPION HYDROCHLORIDE\NALTREXONE HYDROCHLORIDE
     Dosage: 90 MG/8 MG, 1 TABLET Q AM
     Route: 048
     Dates: start: 20221115
  8. FERAMAX [Suspect]
     Active Substance: IRON\POLYSACCHARIDES
     Indication: Blood iron decreased
     Dosage: 2 DOSAGE FORMS (1 IN 1 D)
     Route: 048
  9. FERAMAX [Suspect]
     Active Substance: IRON\POLYSACCHARIDES
     Dosage: DOSE REDUCED
     Route: 065
  10. OZEMPIC [Suspect]
     Active Substance: SEMAGLUTIDE
     Indication: Product used for unknown indication
     Dosage: UNK
     Route: 065
     Dates: start: 2023
  11. ANASTROZOLE [Suspect]
     Active Substance: ANASTROZOLE
     Indication: Hormone therapy
     Dosage: UNK
     Route: 065
  12. GLICLAZIDE [Suspect]
     Active Substance: GLICLAZIDE
     Indication: Diabetes mellitus
     Dosage: 1 IN 1 D
     Route: 048
  13. GLICLAZIDE [Suspect]
     Active Substance: GLICLAZIDE
     Dosage: REDUCED (30 MG,1 IN 1 D)
     Route: 048
     Dates: start: 202310
  14. METFORMIN [Concomitant]
     Active Substance: METFORMIN HYDROCHLORIDE
     Indication: Diabetes mellitus
     Dosage: 1 IN 12 HR
     Route: 048
  15. METFORMIN [Concomitant]
     Active Substance: METFORMIN HYDROCHLORIDE
     Dosage: DOSE INCREASED (850 MG,1 IN 8 HR)
     Route: 048
     Dates: start: 202010
  16. IRBESARTAN [Concomitant]
     Active Substance: IRBESARTAN
     Indication: Hypertension
     Dosage: 1 IN 1 D
     Route: 048
  17. JANUVIA [Concomitant]
     Active Substance: SITAGLIPTIN PHOSPHATE
     Indication: Diabetes mellitus
     Dosage: 100 MG,1 IN 1 D
     Route: 048
  18. FILGRASTIM [Concomitant]
     Active Substance: FILGRASTIM
     Indication: White blood cell count decreased
     Dosage: 1 IN 1 AS REQUIRED
     Route: 058
     Dates: start: 20230810, end: 20230810
  19. GABAPENTIN [Concomitant]
     Active Substance: GABAPENTIN
     Indication: Pain
     Dosage: 1 IN 12 HR
     Route: 048
  20. ARTHROTEC [Concomitant]
     Active Substance: DICLOFENAC SODIUM\MISOPROSTOL
     Indication: Pain
     Dosage: 1 IN 1 D
     Route: 048

REACTIONS (61)
  - Device related infection [Unknown]
  - Hallucination, auditory [Unknown]
  - Arteriosclerosis [Not Recovered/Not Resolved]
  - Breast cancer [Recovered/Resolved]
  - Haemoglobin decreased [Not Recovered/Not Resolved]
  - Urinary retention [Not Recovered/Not Resolved]
  - Gastrointestinal sounds abnormal [Unknown]
  - Calcinosis [Not Recovered/Not Resolved]
  - Abdominal distension [Unknown]
  - Rotator cuff syndrome [Unknown]
  - Skin exfoliation [Not Recovered/Not Resolved]
  - Erythema [Not Recovered/Not Resolved]
  - Dermatitis [Not Recovered/Not Resolved]
  - Blood iron decreased [Not Recovered/Not Resolved]
  - Neutrophil count decreased [Unknown]
  - Trigger finger [Not Recovered/Not Resolved]
  - Anaemia [Not Recovered/Not Resolved]
  - Pain in extremity [Not Recovered/Not Resolved]
  - Visual impairment [Recovered/Resolved]
  - Dry skin [Not Recovered/Not Resolved]
  - Blood glucose fluctuation [Not Recovered/Not Resolved]
  - Weight increased [Unknown]
  - Lymphoedema [Not Recovered/Not Resolved]
  - Fluid retention [Not Recovered/Not Resolved]
  - Hypoaesthesia [Not Recovered/Not Resolved]
  - Radiation associated pain [Not Recovered/Not Resolved]
  - Poor quality sleep [Unknown]
  - Diffuse idiopathic skeletal hyperostosis [Not Recovered/Not Resolved]
  - Synovial cyst [Not Recovered/Not Resolved]
  - Serum ferritin decreased [Not Recovered/Not Resolved]
  - Arthritis [Not Recovered/Not Resolved]
  - Glycosylated haemoglobin increased [Not Recovered/Not Resolved]
  - Nocturia [Recovered/Resolved]
  - Nasopharyngitis [Recovered/Resolved]
  - Sleep disorder due to general medical condition, insomnia type [Not Recovered/Not Resolved]
  - Flatulence [Unknown]
  - Somnolence [Not Recovered/Not Resolved]
  - Pruritus [Unknown]
  - Dyspepsia [Unknown]
  - Paraesthesia [Unknown]
  - Cough [Unknown]
  - Hypoglycaemia [Not Recovered/Not Resolved]
  - Depression [Unknown]
  - Tremor [Unknown]
  - Fatigue [Not Recovered/Not Resolved]
  - Nervousness [Unknown]
  - Anxiety [Unknown]
  - Abnormal dreams [Not Recovered/Not Resolved]
  - Nightmare [Not Recovered/Not Resolved]
  - Diarrhoea [Unknown]
  - Dizziness [Not Recovered/Not Resolved]
  - Constipation [Not Recovered/Not Resolved]
  - Disturbance in attention [Unknown]
  - Illness [Not Recovered/Not Resolved]
  - Nausea [Not Recovered/Not Resolved]
  - Feeling abnormal [Not Recovered/Not Resolved]
  - Hot flush [Not Recovered/Not Resolved]
  - Headache [Not Recovered/Not Resolved]
  - Therapy interrupted [Unknown]
  - Treatment noncompliance [Unknown]
  - Inappropriate schedule of product administration [Unknown]

NARRATIVE: CASE EVENT DATE: 20190101
